FAERS Safety Report 16741493 (Version 3)
Quarter: 2019Q4

REPORT INFORMATION
  Report Type: Spontaneous
  Country: US (occurrence: US)
  Receive Date: 20190826
  Receipt Date: 20191011
  Transmission Date: 20200122
  Serious: Yes (Other)
  Sender: FDA-Public Use
  Company Number: US-PFIZER INC-2019356629

PATIENT

DRUGS (4)
  1. NEURONTIN [Suspect]
     Active Substance: GABAPENTIN
     Dosage: 7000 MG, DAILY
  2. NEURONTIN [Suspect]
     Active Substance: GABAPENTIN
     Dosage: 10000 MG, DAILY
  3. NEURONTIN [Suspect]
     Active Substance: GABAPENTIN
     Dosage: 8000 MG, DAILY
  4. NEURONTIN [Suspect]
     Active Substance: GABAPENTIN
     Dosage: 18000 MG, UNK

REACTIONS (7)
  - Gastrointestinal disorder [Unknown]
  - Overdose [Unknown]
  - Prescribed overdose [Unknown]
  - Drug abuse [Unknown]
  - Visual impairment [Unknown]
  - Drug dependence [Unknown]
  - Renal failure [Unknown]
